FAERS Safety Report 7014649 (Version 3)
Quarter: 2012Q4

REPORT INFORMATION
  Report Type: 
  Country: US (occurrence: US)
  Receive Date: 20060213
  Receipt Date: 20121106
  Transmission Date: 20130627
  Serious: Yes (Other)
  Sender: FDA-Public Use
  Company Number: US-PFIZER INC-2006018128

PATIENT
  Age: 56 Year
  Sex: Female
  Weight: 68 kg

DRUGS (10)
  1. PROVERA [Suspect]
     Indication: HORMONE REPLACEMENT THERAPY
     Dosage: 5 mg, UNK
     Route: 048
     Dates: start: 199405, end: 199606
  2. MEDROXYPROGESTERONE ACETATE [Suspect]
     Indication: HORMONE REPLACEMENT THERAPY
     Dosage: UNK
     Dates: start: 1994, end: 2003
  3. PREMARIN [Suspect]
     Indication: OESTROGEN REPLACEMENT THERAPY
     Dosage: 0.625 mg, UNK
     Route: 048
     Dates: start: 199405, end: 199511
  4. PREMARIN [Suspect]
     Indication: HORMONE REPLACEMENT THERAPY
     Dosage: 1.25 mg, UNK
     Dates: start: 199511, end: 199810
  5. PREMARIN [Suspect]
     Dosage: 0.9 mg, UNK
     Dates: start: 199811, end: 200208
  6. PREMARIN [Suspect]
     Dosage: 0.625 mg, UNK
     Dates: start: 200208, end: 200301
  7. PREMPRO [Suspect]
     Indication: HORMONE REPLACEMENT THERAPY
     Dosage: 0.625/5 mg
     Dates: start: 1996, end: 1997
  8. CYCRIN [Suspect]
     Indication: HORMONE REPLACEMENT THERAPY
     Dosage: 5 mg, UNK
     Route: 048
     Dates: start: 199606, end: 199810
  9. PROMETRIUM [Suspect]
     Indication: HORMONE REPLACEMENT THERAPY
     Dosage: 100 mg, UNK
     Dates: start: 200208, end: 200301
  10. MEDROXYPROGESTERONE ACETATE [Suspect]
     Indication: HORMONE REPLACEMENT THERAPY
     Dosage: 5 mg, UNK
     Route: 048
     Dates: start: 199812, end: 200208

REACTIONS (1)
  - Breast cancer female [Unknown]
